FAERS Safety Report 18022650 (Version 10)
Quarter: 2020Q3

REPORT INFORMATION
  Report Type: Report from Study
  Country: IT (occurrence: IT)
  Receive Date: 20200714
  Receipt Date: 20200916
  Transmission Date: 20201103
  Serious: Yes (Hospitalization)
  Sender: FDA-Public Use
  Company Number: IT-EISAI MEDICAL RESEARCH-EC-2020-074620

PATIENT
  Age: 64 Year
  Sex: Male
  Weight: 110 kg

DRUGS (14)
  1. LENVATINIB [Suspect]
     Active Substance: LENVATINIB
     Route: 048
     Dates: start: 20200511, end: 20200621
  2. KANRENOL [Concomitant]
     Active Substance: CANRENOATE POTASSIUM
     Dates: start: 20200313
  3. LENVATINIB [Suspect]
     Active Substance: LENVATINIB
     Indication: HEPATOCELLULAR CARCINOMA
     Route: 048
     Dates: start: 20200414, end: 20200504
  4. PORTOLAC [Concomitant]
     Active Substance: LACTITOL
     Dates: start: 20200313
  5. PLACEBO [Suspect]
     Active Substance: UNSPECIFIED INGREDIENT
     Route: 041
     Dates: start: 20200605, end: 20200605
  6. VIREAD [Concomitant]
     Active Substance: TENOFOVIR DISOPROXIL FUMARATE
     Dates: start: 202003
  7. INSULIN [Concomitant]
     Active Substance: INSULIN NOS
     Dates: start: 202003
  8. LAEVOLAC [Concomitant]
     Active Substance: LACTULOSE
     Dates: start: 20200313
  9. PLACEBO [Suspect]
     Active Substance: UNSPECIFIED INGREDIENT
     Indication: HEPATOCELLULAR CARCINOMA
     Route: 041
     Dates: start: 20200414, end: 20200414
  10. INDERAL [Concomitant]
     Active Substance: PROPRANOLOL HYDROCHLORIDE
     Dates: start: 20200313
  11. LASIX [Concomitant]
     Active Substance: FUROSEMIDE
     Dates: start: 20200313
  12. PLACEBO [Suspect]
     Active Substance: UNSPECIFIED INGREDIENT
     Route: 041
     Dates: start: 20200515, end: 20200515
  13. PLACEBO [Suspect]
     Active Substance: UNSPECIFIED INGREDIENT
     Route: 041
     Dates: start: 20200710
  14. DIBASE [Concomitant]
     Active Substance: CHOLECALCIFEROL
     Dates: start: 20200313

REACTIONS (1)
  - Hepatic encephalopathy [Recovered/Resolved]

NARRATIVE: CASE EVENT DATE: 20200505
